FAERS Safety Report 15957022 (Version 1)
Quarter: 2019Q1

REPORT INFORMATION
  Report Type: Spontaneous
  Country: FR (occurrence: FR)
  Receive Date: 20190213
  Receipt Date: 20190213
  Transmission Date: 20190417
  Serious: Yes (Hospitalization)
  Sender: FDA-Public Use
  Company Number: FR-INDIVIOR LIMITED-INDV-117644-2019

PATIENT
  Age: 44 Year
  Sex: Male

DRUGS (2)
  1. BACLOFENE [Suspect]
     Active Substance: BACLOFEN
     Indication: PRODUCT USED FOR UNKNOWN INDICATION
     Dosage: UNK
     Route: 048
  2. SUBUTEX [Suspect]
     Active Substance: BUPRENORPHINE HYDROCHLORIDE
     Indication: PRODUCT USED FOR UNKNOWN INDICATION
     Dosage: 4 UNK
     Route: 040
     Dates: end: 20150105

REACTIONS (3)
  - Product use issue [Recovered/Resolved]
  - Drug dependence [Not Recovered/Not Resolved]
  - Off label use [Unknown]
